FAERS Safety Report 10684824 (Version 1)
Quarter: 2014Q4

REPORT INFORMATION
  Report Type: Spontaneous
  Country: PT (occurrence: None)
  Receive Date: 20141229
  Receipt Date: 20141229
  Transmission Date: 20150529
  Serious: Yes (Other)
  Sender: FDA-Public Use
  Company Number: 2672969

PATIENT
  Age: 29 Year
  Sex: Female
  Weight: 85 kg

DRUGS (2)
  1. SUFENTANIL [Suspect]
     Active Substance: SUFENTANIL
     Indication: EPIDURAL ANAESTHESIA
     Dosage: 10 UG MICROGRAM(S), UNKNOWN, UNKNOWN
  2. ROPIVACAINE HYDROCHLORIDE. [Suspect]
     Active Substance: ROPIVACAINE HYDROCHLORIDE
     Indication: EPIDURAL ANALGESIA
     Dosage: 20 MG MILLIGRAM(S), UNKNOWN, EPIDURAL?
     Route: 008

REACTIONS (6)
  - Anaesthetic complication [None]
  - Somnolence [None]
  - Coma [None]
  - Exposure during pregnancy [None]
  - Pupils unequal [None]
  - Respiratory depression [None]
